FAERS Safety Report 19021615 (Version 1)
Quarter: 2021Q1

REPORT INFORMATION
  Report Type: Spontaneous
  Country: US (occurrence: US)
  Receive Date: 20210318
  Receipt Date: 20210318
  Transmission Date: 20210420
  Serious: Yes (Death, Other)
  Sender: FDA-Public Use
  Company Number: US-AMGEN-USASP2021038391

PATIENT

DRUGS (2)
  1. PLERIXAFOR [Concomitant]
     Active Substance: PLERIXAFOR
     Dosage: 240 MICROGRAM/KILOGRAM
     Route: 058
  2. FILGRASTIM [Suspect]
     Active Substance: FILGRASTIM
     Indication: HAEMATOPOIETIC STEM CELL MOBILISATION
     Dosage: 10 MICROGRAM/KILOGRAM, FOR UP TO 9 DAYS
     Route: 058

REACTIONS (18)
  - Nausea [Unknown]
  - Ill-defined disorder [Unknown]
  - Blood alkaline phosphatase increased [Recovered/Resolved]
  - Therapeutic product effect incomplete [Unknown]
  - Thrombocytopenia [Recovered/Resolved]
  - Lymphopenia [Unknown]
  - Diarrhoea [Unknown]
  - Anaemia [Unknown]
  - Death [Fatal]
  - Abdominal pain [Unknown]
  - Infection [Unknown]
  - Respiratory disorder [Fatal]
  - Injection site erythema [Unknown]
  - Pyrexia [Unknown]
  - Failure to thrive [Fatal]
  - Insomnia [Unknown]
  - Pneumonia [Fatal]
  - Vomiting [Unknown]
